FAERS Safety Report 7360889-3 (Version None)
Quarter: 2011Q1

REPORT INFORMATION
  Report Type: 
  Country: None (occurrence: None)
  Receive Date: 20110315
  Receipt Date: 20110315
  Transmission Date: 20110831
  Serious: Yes (Other)
  Sender: FDA-Public Use
  Company Number: None

PATIENT
  Age: 31 Year
  Sex: Female
  Weight: 65.7716 kg

DRUGS (1)
  1. AVELOX [Suspect]
     Indication: SINUSITIS
     Dosage: 10 DAILY PO
     Route: 048
     Dates: start: 20110307, end: 20110307

REACTIONS (6)
  - PANIC ATTACK [None]
  - ANXIETY [None]
  - PRURITUS GENERALISED [None]
  - URTICARIA [None]
  - PHOTOPHOBIA [None]
  - HALLUCINATIONS, MIXED [None]
